FAERS Safety Report 18179530 (Version 1)
Quarter: 2020Q3

REPORT INFORMATION
  Report Type: Spontaneous
  Country: US (occurrence: US)
  Receive Date: 20200821
  Receipt Date: 20200821
  Transmission Date: 20201103
  Serious: No
  Sender: FDA-Public Use
  Company Number: US-PFIZER INC-2020323321

PATIENT
  Age: 42 Year
  Sex: Female

DRUGS (2)
  1. SOMAVERT [Suspect]
     Active Substance: PEGVISOMANT
     Indication: ACROMEGALY
     Dosage: 10 MG, 1X/DAY (TAKING 10MG ONCE A DAILY THREE TIMES A WEEK)
     Route: 058
     Dates: start: 20200814
  2. SOMATULINE [LANREOTIDE] [Concomitant]
     Active Substance: LANREOTIDE
     Dosage: UNK

REACTIONS (3)
  - Arthralgia [Unknown]
  - Off label use [Unknown]
  - Product use issue [Unknown]

NARRATIVE: CASE EVENT DATE: 202008
